FAERS Safety Report 4306015-6 (Version None)
Quarter: 2004Q1

REPORT INFORMATION
  Report Type: 
  Country: None (occurrence: None)
  Receive Date: 20040225
  Receipt Date: 20040211
  Transmission Date: 20041129
  Serious: Yes (Hospitalization)
  Sender: FDA-Public Use
  Company Number: US_0402100734

PATIENT
  Age: 26 Year
  Sex: Female
  Weight: 101 kg

DRUGS (1)
  1. HUMALOG [Suspect]
     Indication: GESTATIONAL DIABETES
     Dosage: 8 U2 DAY
     Dates: start: 20040112

REACTIONS (2)
  - COMPLICATIONS OF MATERNAL EXPOSURE TO THERAPEUTIC DRUGS [None]
  - MUSCLE CRAMP [None]
